FAERS Safety Report 11005516 (Version 1)
Quarter: 2015Q2

REPORT INFORMATION
  Report Type: Spontaneous
  Country: US (occurrence: US)
  Receive Date: 20150409
  Receipt Date: 20150409
  Transmission Date: 20150821
  Serious: No
  Sender: FDA-Public Use
  Company Number: US-ALLERGAN-1420481US

PATIENT
  Age: 90 Year
  Sex: Male

DRUGS (3)
  1. LUMIGAN [Suspect]
     Active Substance: BIMATOPROST
     Indication: PRODUCT USED FOR UNKNOWN INDICATION
     Dosage: 2 GTT, QHS
     Route: 047
  2. COUMADIN [Concomitant]
     Active Substance: WARFARIN SODIUM
     Dosage: UNK
     Route: 048
  3. LUMIGAN [Suspect]
     Active Substance: BIMATOPROST
     Dosage: MORE THAN ONE DROP PER EYE, SINGLE
     Route: 047
     Dates: start: 20140918, end: 20140918

REACTIONS (4)
  - Eye inflammation [Unknown]
  - Incorrect dose administered [Unknown]
  - Lacrimation increased [Unknown]
  - Ocular hyperaemia [Unknown]
